FAERS Safety Report 4782366-6 (Version None)
Quarter: 2005Q3

REPORT INFORMATION
  Report Type: 
  Country: None (occurrence: None)
  Receive Date: 20050914
  Receipt Date: 20050706
  Transmission Date: 20060218
  Serious: Yes (Other)
  Sender: FDA-Public Use
  Company Number: 163-20785-05070139

PATIENT
  Sex: 0

DRUGS (2)
  1. THALOMID [Suspect]
     Indication: OESOPHAGEAL ADENOCARCINOMA
     Dosage: 400 MG, CYCLE 1: QD, DAYS -6 TO 7, ORAL; SEE IMAGE
     Route: 048
     Dates: start: 20030521
  2. CPT-11 (IRINOTECAN) (SOLUTION) [Suspect]
     Indication: OESOPHAGEAL ADENOCARCINOMA
     Dosage: 350 MG/M2, CYCLE 1: DAYS 1 AND 22 (OVER 90 MIN), INTRAVENOUS; SEE IMAGE
     Route: 042
     Dates: start: 20030521

REACTIONS (1)
  - DEPRESSED LEVEL OF CONSCIOUSNESS [None]
